FAERS Safety Report 21763447 (Version 1)
Quarter: 2022Q4

REPORT INFORMATION
  Report Type: Report from Study
  Country: JP (occurrence: JP)
  Receive Date: 20221221
  Receipt Date: 20221221
  Transmission Date: 20230112
  Serious: Yes (Hospitalization, Other)
  Sender: FDA-Public Use
  Company Number: JP-002147023-NVSJ2022JP276603

PATIENT
  Age: 58 Year
  Sex: Female
  Weight: 51.4 kg

DRUGS (1)
  1. TABRECTA [Suspect]
     Active Substance: CAPMATINIB
     Indication: Product used for unknown indication
     Dosage: 600 MG
     Route: 048
     Dates: start: 20220916, end: 20221211

REACTIONS (4)
  - Respiratory distress [Unknown]
  - Ascites [Unknown]
  - Pleural effusion [Unknown]
  - Disease progression [Unknown]

NARRATIVE: CASE EVENT DATE: 20221213
